FAERS Safety Report 7718770-3 (Version None)
Quarter: 2011Q3

REPORT INFORMATION
  Report Type: 
  Country: None (occurrence: None)
  Receive Date: 20110830
  Receipt Date: 20110825
  Transmission Date: 20111222
  Serious: Yes (Other)
  Sender: FDA-Public Use
  Company Number: US-PFIZER INC-2011198772

PATIENT
  Sex: Female

DRUGS (2)
  1. LYRICA [Suspect]
     Dosage: UNK
  2. NEURONTIN [Suspect]
     Indication: NEUROPATHY PERIPHERAL
     Dosage: UNK

REACTIONS (11)
  - BALANCE DISORDER [None]
  - NEUROPATHY PERIPHERAL [None]
  - FALL [None]
  - HYPOAESTHESIA [None]
  - BEDRIDDEN [None]
  - SOMNOLENCE [None]
  - DRUG INEFFECTIVE [None]
  - SPINAL COLUMN STENOSIS [None]
  - FEELING HOT [None]
  - PAIN [None]
  - LIMB DISCOMFORT [None]
